FAERS Safety Report 16989818 (Version 2)
Quarter: 2019Q4

REPORT INFORMATION
  Report Type: Spontaneous
  Country: US (occurrence: US)
  Receive Date: 20191104
  Receipt Date: 20191115
  Transmission Date: 20200122
  Serious: Yes (Death)
  Sender: FDA-Public Use
  Company Number: US-HORIZON-ACT-0293-2019

PATIENT
  Age: 69 Year
  Sex: Male

DRUGS (2)
  1. ACTIMMUNE [Suspect]
     Active Substance: INTERFERON GAMMA-1B
     Indication: CUTANEOUS T-CELL LYMPHOMA
     Dosage: 100MCG 3 TIMES WEEKLY
     Dates: start: 2019
  2. TARGRETIN [Concomitant]
     Active Substance: BEXAROTENE

REACTIONS (3)
  - Disease progression [Fatal]
  - Cutaneous T-cell lymphoma [Fatal]
  - Off label use [Unknown]

NARRATIVE: CASE EVENT DATE: 2019
